FAERS Safety Report 24351704 (Version 1)
Quarter: 2024Q3

REPORT INFORMATION
  Report Type: Spontaneous
  Country: FR (occurrence: FR)
  Receive Date: 20240923
  Receipt Date: 20240923
  Transmission Date: 20241017
  Serious: Yes (Hospitalization)
  Sender: ELI LILLY AND CO
  Company Number: FR-ELI_LILLY_AND_COMPANY-FR202409009306

PATIENT
  Age: 53 Year
  Sex: Female
  Weight: 58 kg

DRUGS (2)
  1. PEMETREXED [Suspect]
     Active Substance: PEMETREXED
     Indication: Lung adenocarcinoma
     Dosage: 500 MG/M2, UNKNOWN
     Route: 042
     Dates: start: 20240327
  2. PEMBROLIZUMAB [Suspect]
     Active Substance: PEMBROLIZUMAB
     Indication: Lung adenocarcinoma
     Dosage: 200 MG, UNKNOWN
     Route: 042
     Dates: start: 20240327

REACTIONS (2)
  - Febrile bone marrow aplasia [Recovered/Resolved]
  - Rash maculo-papular [Recovered/Resolved]

NARRATIVE: CASE EVENT DATE: 20240723
